FAERS Safety Report 4787458-3 (Version None)
Quarter: 2005Q4

REPORT INFORMATION
  Report Type: 
  Country: None (occurrence: None)
  Receive Date: 20051004
  Receipt Date: 20050910
  Transmission Date: 20060501
  Serious: Yes (Hospitalization)
  Sender: FDA-Public Use
  Company Number: DE-SANOFI-SYNTHELABO-A04200500776

PATIENT
  Sex: Female
  Weight: 56 kg

DRUGS (6)
  1. ELOXATIN [Suspect]
     Indication: COLORECTAL CANCER
     Route: 041
     Dates: start: 20050831, end: 20050831
  2. LEUCOVORIN CALCIUM [Concomitant]
     Indication: COLORECTAL CANCER
     Route: 041
     Dates: start: 20050831, end: 20050831
  3. FLUOROURACIL [Concomitant]
     Indication: COLORECTAL CANCER
     Route: 041
     Dates: start: 20050831, end: 20050101
  4. BISOPROLOL [Concomitant]
     Indication: HYPERTENSION
     Route: 048
  5. FOSAMAX [Concomitant]
     Indication: OSTEOPOROSIS
     Route: 048
  6. XELODA [Concomitant]
     Indication: COLORECTAL CANCER
     Dosage: UNK
     Route: 048
     Dates: end: 20050701

REACTIONS (4)
  - BRONCHOSPASM [None]
  - CYANOSIS [None]
  - LARYNGOSPASM [None]
  - STRIDOR [None]
